FAERS Safety Report 9678775 (Version 1)
Quarter: 2013Q4

REPORT INFORMATION
  Report Type: Spontaneous
  Country: JP (occurrence: None)
  Receive Date: 20131107
  Receipt Date: 20131107
  Transmission Date: 20140711
  Serious: Yes (Death)
  Sender: FDA-Public Use
  Company Number: SYM-2013-12342

PATIENT
  Age: 67 Year
  Sex: Male

DRUGS (4)
  1. FLUOROURACIL (FLUOROURACIL) [Suspect]
     Indication: SQUAMOUS CELL CARCINOMA OF THE ORAL CAVITY
  2. DOCETAXEL (DOCETAXEL) [Suspect]
     Indication: SQUAMOUS CELL CARCINOMA OF THE ORAL CAVITY
  3. CISPLATIN (CISPLATIN) [Suspect]
     Indication: SQUAMOUS CELL CARCINOMA OF THE ORAL CAVITY
  4. THERAPEUTIC RADIOPHARMACEUTICALS (THERAPEUTIC RADIOPHARMACEUTICALS) [Suspect]
     Indication: SQUAMOUS CELL CARCINOMA OF THE ORAL CAVITY

REACTIONS (6)
  - Renal failure acute [None]
  - Electrolyte imbalance [None]
  - Headache [None]
  - Malaise [None]
  - Diarrhoea [None]
  - Oliguria [None]
